FAERS Safety Report 21195549 (Version 2)
Quarter: 2022Q3

REPORT INFORMATION
  Report Type: Spontaneous
  Country: CN (occurrence: CN)
  Receive Date: 20220810
  Receipt Date: 20220811
  Transmission Date: 20221027
  Serious: Yes (Other)
  Sender: FDA-Public Use
  Company Number: CN-GLAXOSMITHKLINE-CNCH2022027824

PATIENT

DRUGS (1)
  1. IBUPROFEN [Suspect]
     Active Substance: IBUPROFEN
     Indication: Toothache
     Dosage: 1 DF, BID
     Dates: start: 20220806, end: 20220807

REACTIONS (2)
  - Hallucination, visual [Recovered/Resolved]
  - Disorientation [Recovering/Resolving]

NARRATIVE: CASE EVENT DATE: 20220807
